FAERS Safety Report 7311578-2 (Version None)
Quarter: 2011Q1

REPORT INFORMATION
  Report Type: 
  Country: None (occurrence: None)
  Receive Date: 20110216
  Receipt Date: 20110216
  Transmission Date: 20110831
  Serious: No
  Sender: FDA-Public Use
  Company Number: None

PATIENT
  Age: 53 Year
  Sex: Female
  Weight: 67.586 kg

DRUGS (1)
  1. SEPTOCAINE [Suspect]
     Indication: TOOTH REPAIR
     Dosage: 2 INJECTIONS DENTAL
     Route: 004
     Dates: start: 20100429, end: 20100429

REACTIONS (15)
  - DRUG ADMINISTRATION ERROR [None]
  - SNEEZING [None]
  - BRADYPHRENIA [None]
  - LIP DISORDER [None]
  - DRUG HYPERSENSITIVITY [None]
  - SPEECH DISORDER [None]
  - IATROGENIC INJURY [None]
  - VIITH NERVE PARALYSIS [None]
  - SINUSITIS [None]
  - MEMORY IMPAIRMENT [None]
  - SWELLING FACE [None]
  - EYELID OEDEMA [None]
  - LIP SWELLING [None]
  - HYPOAESTHESIA ORAL [None]
  - SINUS PERFORATION [None]
